FAERS Safety Report 13566290 (Version 2)
Quarter: 2017Q2

REPORT INFORMATION
  Report Type: Report from Study
  Country: US (occurrence: US)
  Receive Date: 20170521
  Receipt Date: 20170616
  Transmission Date: 20170830
  Serious: Yes (Death, Hospitalization)
  Sender: FDA-Public Use
  Company Number: US-HLSUS-2017-US-000303

PATIENT
  Age: 84 Year
  Sex: Female

DRUGS (4)
  1. QUETIAPINE. [Concomitant]
     Active Substance: QUETIAPINE
     Dosage: 300MG TID
     Route: 065
  2. DILANTIN [Concomitant]
     Active Substance: PHENYTOIN
     Indication: SEIZURE
     Route: 065
  3. CLOZARIL [Suspect]
     Active Substance: CLOZAPINE
     Dosage: 275 MG QHS
     Route: 048
     Dates: end: 20170129
  4. LOVASTATIN. [Concomitant]
     Active Substance: LOVASTATIN
     Route: 065

REACTIONS (8)
  - Abdominal pain [Unknown]
  - Shock [Unknown]
  - Leukocytosis [Unknown]
  - Death [Fatal]
  - Syncope [Unknown]
  - Atrial fibrillation [Unknown]
  - CT hypotension complex [Unknown]
  - Pyrexia [Unknown]

NARRATIVE: CASE EVENT DATE: 20170129
